FAERS Safety Report 7937737-3 (Version None)
Quarter: 2011Q4

REPORT INFORMATION
  Report Type: 
  Country: None (occurrence: None)
  Receive Date: 20111123
  Receipt Date: 20111117
  Transmission Date: 20120403
  Serious: Yes (Other)
  Sender: FDA-Public Use
  Company Number: PHHY2010CA69404

PATIENT
  Sex: Female

DRUGS (7)
  1. ZOCOR [Concomitant]
  2. ATENOLOL [Concomitant]
  3. ZOLEDRONOC ACID [Suspect]
     Indication: OSTEOPOROSIS
     Dosage: 5 MG, UNK
     Route: 042
     Dates: start: 20091019
  4. ANAESTHETICS, LOCAL [Concomitant]
  5. FOSAMAX [Concomitant]
  6. DIDROCAL [Concomitant]
  7. PLAVIX [Concomitant]

REACTIONS (5)
  - TOOTH LOSS [None]
  - DENTAL CARIES [None]
  - GINGIVAL PAIN [None]
  - EATING DISORDER [None]
  - WEIGHT DECREASED [None]
